FAERS Safety Report 10754644 (Version 1)
Quarter: 2015Q1

REPORT INFORMATION
  Report Type: Spontaneous
  Country: GB (occurrence: GB)
  Receive Date: 20150202
  Receipt Date: 20150202
  Transmission Date: 20150721
  Serious: Yes (Life-Threatening, Hospitalization)
  Sender: FDA-Public Use
  Company Number: GB-TEVA-537413ISR

PATIENT
  Age: 58 Year
  Sex: Male

DRUGS (3)
  1. DOXAZOSIN [Suspect]
     Active Substance: DOXAZOSIN\DOXAZOSIN MESYLATE
     Indication: OVERDOSE
     Dosage: 82 MG
     Route: 065
  2. RAMIPRIL. [Suspect]
     Active Substance: RAMIPRIL
     Indication: OVERDOSE
     Dosage: 500 MG
     Route: 065
  3. AMLODIPINE [Suspect]
     Active Substance: AMLODIPINE BESYLATE
     Indication: OVERDOSE
     Dosage: 500 MG
     Route: 065

REACTIONS (3)
  - Overdose [Recovering/Resolving]
  - Hypotension [Recovering/Resolving]
  - Acidosis [Recovered/Resolved]
